FAERS Safety Report 16444652 (Version 2)
Quarter: 2019Q2

REPORT INFORMATION
  Report Type: Spontaneous
  Country: CZ (occurrence: CZ)
  Receive Date: 20190618
  Receipt Date: 20190627
  Transmission Date: 20190711
  Serious: Yes (Other)
  Sender: FDA-Public Use
  Company Number: PHHY2019CZ137435

PATIENT
  Age: 52 Year
  Sex: Female

DRUGS (1)
  1. GILENYA [Suspect]
     Active Substance: FINGOLIMOD HYDROCHLORIDE
     Indication: RELAPSING-REMITTING MULTIPLE SCLEROSIS
     Dosage: 0.5 MG, QD
     Route: 065
     Dates: start: 201410

REACTIONS (7)
  - Fatigue [Unknown]
  - Chest pain [Unknown]
  - Back pain [Unknown]
  - Vestibular disorder [Unknown]
  - Expanded disability status scale score increased [Recovering/Resolving]
  - Intervertebral disc protrusion [Unknown]
  - Depression [Unknown]

NARRATIVE: CASE EVENT DATE: 201502
